FAERS Safety Report 21739024 (Version 1)
Quarter: 2022Q4

REPORT INFORMATION
  Report Type: Spontaneous
  Country: MA (occurrence: MA)
  Receive Date: 20221216
  Receipt Date: 20221216
  Transmission Date: 20230112
  Serious: Yes (Hospitalization, Other)
  Sender: FDA-Public Use
  Company Number: MA-AMNEAL PHARMACEUTICALS-2022-AMRX-03883

PATIENT
  Age: 68 Year
  Sex: Female

DRUGS (2)
  1. METHOTREXATE [Suspect]
     Active Substance: METHOTREXATE
     Indication: Product used for unknown indication
     Dosage: 5 MILLIGRAM, 1 /WEEK
     Route: 065
  2. METHOTREXATE [Suspect]
     Active Substance: METHOTREXATE
     Dosage: 5 MILLIGRAM, QD
     Route: 065

REACTIONS (6)
  - Cardiotoxicity [Recovering/Resolving]
  - Left ventricular failure [Recovering/Resolving]
  - Overdose [Unknown]
  - Inappropriate schedule of product administration [Unknown]
  - Pancytopenia [Recovering/Resolving]
  - Labelled drug-drug interaction issue [Unknown]
